FAERS Safety Report 19096324 (Version 1)
Quarter: 2021Q2

REPORT INFORMATION
  Report Type: Spontaneous
  Country: TR (occurrence: TR)
  Receive Date: 20210406
  Receipt Date: 20210406
  Transmission Date: 20210717
  Serious: Yes (Other)
  Sender: FDA-Public Use
  Company Number: NVSC2021TR070629

PATIENT
  Sex: Female
  Weight: 50 kg

DRUGS (6)
  1. ALLOPURINOL. [Suspect]
     Active Substance: ALLOPURINOL
     Indication: BLOOD URIC ACID INCREASED
     Dosage: UNK
     Route: 065
  2. TRAJENTA [Concomitant]
     Active Substance: LINAGLIPTIN
     Indication: TYPE 2 DIABETES MELLITUS
     Dosage: UNK (STARTED 1 YEAR AGO)
     Route: 065
  3. M COLCHICINE [Concomitant]
     Indication: PAIN IN EXTREMITY
     Dosage: UNK
     Route: 065
  4. M COLCHICINE [Concomitant]
     Indication: PERIPHERAL SWELLING
  5. GLIFOR [Concomitant]
     Active Substance: METFORMIN HYDROCHLORIDE
     Indication: TYPE 2 DIABETES MELLITUS
     Dosage: UNK (STOPPED 1 YEAR AGO)
     Route: 065
  6. NAGLID [Concomitant]
     Indication: TYPE 2 DIABETES MELLITUS
     Dosage: UNK (STARTED 1 YEAR AGO)
     Route: 065

REACTIONS (4)
  - Hip fracture [Unknown]
  - Mobility decreased [Unknown]
  - Product dose omission issue [Unknown]
  - Hypersensitivity [Unknown]
